FAERS Safety Report 8969396 (Version 1)
Quarter: 2012Q4

REPORT INFORMATION
  Report Type: 
  Country: GB (occurrence: GB)
  Receive Date: 20121217
  Receipt Date: 20121217
  Transmission Date: 20130627
  Serious: Yes (Disabling)
  Sender: FDA-Public Use
  Company Number: PHHY2012GB112827

PATIENT
  Sex: Female

DRUGS (12)
  1. PREDNISOLONE SANDOZ [Suspect]
     Indication: LOWER RESPIRATORY TRACT INFECTION
     Route: 048
  2. AMOXICILLIN [Interacting]
     Indication: LOWER RESPIRATORY TRACT INFECTION
     Route: 048
  3. LANSOPRAZOLE [Suspect]
  4. ZANTAC [Interacting]
     Dosage: 300 mg, QD
  5. OLMESARTAN MEDOXOMIL [Concomitant]
  6. TIOTROPIUM BROMIDE [Concomitant]
  7. CARBOCISTEINE [Concomitant]
  8. SALBUTAMOL [Concomitant]
     Route: 055
  9. BUDESONIDE W/FORMOTEROL FUMARATE [Concomitant]
  10. TILADE [Concomitant]
  11. CETIRIZINE [Concomitant]
  12. UNIVER [Concomitant]

REACTIONS (4)
  - Gastrooesophageal reflux disease [Not Recovered/Not Resolved]
  - Dyspepsia [Not Recovered/Not Resolved]
  - Flatulence [Not Recovered/Not Resolved]
  - Drug interaction [Unknown]
